FAERS Safety Report 9289901 (Version 1)
Quarter: 2013Q2

REPORT INFORMATION
  Report Type: Report from Study
  Country: NL (occurrence: NL)
  Receive Date: 20130515
  Receipt Date: 20130515
  Transmission Date: 20140414
  Serious: Yes (Death)
  Sender: FDA-Public Use
  Company Number: PHHY2013NL047837

PATIENT
  Sex: Female

DRUGS (4)
  1. ZOMETA [Suspect]
     Indication: BREAST CANCER METASTATIC
     Dosage: 4 MG, PER 100ML PER 28 DAYS
     Route: 042
  2. ZOMETA [Suspect]
     Dosage: 4 MG, PER 100ML PER 28 DAYS
     Route: 042
     Dates: start: 20121218
  3. ZOMETA [Suspect]
     Dosage: 4 MG, PER 100ML PER 28 DAYS
     Route: 042
     Dates: start: 20130312
  4. ZOMETA [Suspect]
     Dosage: 4 MG, PER 100ML PER 28 DAYS
     Route: 042
     Dates: start: 20130415

REACTIONS (1)
  - Death [Fatal]
